FAERS Safety Report 19056652 (Version 1)
Quarter: 2021Q1

REPORT INFORMATION
  Report Type: Spontaneous
  Country: AT (occurrence: AT)
  Receive Date: 20210325
  Receipt Date: 20210325
  Transmission Date: 20210420
  Serious: Yes (Other)
  Sender: FDA-Public Use
  Company Number: AT-FERRINGPH-2021FE01880

PATIENT
  Sex: Male

DRUGS (2)
  1. DEGARELIX [Suspect]
     Active Substance: DEGARELIX
     Indication: PROSTATE CANCER METASTATIC
     Dosage: UNKNOWN
     Route: 065
     Dates: start: 202006
  2. ERLEADA [Suspect]
     Active Substance: APALUTAMIDE
     Indication: PROSTATE CANCER METASTATIC
     Dosage: UNKNOWN
     Route: 048
     Dates: start: 202007

REACTIONS (2)
  - COVID-19 [Unknown]
  - Rash pruritic [Unknown]

NARRATIVE: CASE EVENT DATE: 202011
